FAERS Safety Report 8114721-0 (Version None)
Quarter: 2012Q1

REPORT INFORMATION
  Report Type: 
  Country: None (occurrence: None)
  Receive Date: 20120202
  Receipt Date: 20120202
  Transmission Date: 20120608
  Serious: No
  Sender: FDA-Public Use
  Company Number: None

PATIENT
  Sex: Female

DRUGS (1)
  1. VICTRELIS [Suspect]
     Dosage: 4 CAPS (800 MG) TID W/FOOD PO
     Route: 048
     Dates: start: 20120107

REACTIONS (6)
  - LIP ULCERATION [None]
  - DRY MOUTH [None]
  - TONGUE ULCERATION [None]
  - DYSGEUSIA [None]
  - MOUTH ULCERATION [None]
  - DYSPEPSIA [None]
